FAERS Safety Report 8591412 (Version 3)
Quarter: 2012Q4

REPORT INFORMATION
  Report Type: Report from Study
  Country: FR (occurrence: FR)
  Receive Date: 20120601
  Receipt Date: 20121212
  Transmission Date: 20130627
  Serious: Yes (Death, Hospitalization, Other)
  Sender: FDA-Public Use
  Company Number: FR-ACTELION-A-CH2012-66379

PATIENT
  Age: 76 Year
  Sex: Female
  Weight: 40 kg

DRUGS (5)
  1. TRACLEER [Suspect]
     Indication: DIGITAL ULCER
     Dosage: 125 mg, bid
     Route: 048
     Dates: start: 20100218, end: 20120303
  2. TRACLEER [Suspect]
     Dosage: 62.5 mg, bid
     Route: 048
     Dates: start: 20100118, end: 20100217
  3. TILDIEM [Concomitant]
  4. REVATIO [Concomitant]
  5. RIVOTRIL [Concomitant]

REACTIONS (3)
  - Pulmonary arterial hypertension [Fatal]
  - Dyspnoea [Fatal]
  - Treatment noncompliance [Unknown]
